FAERS Safety Report 24903196 (Version 1)
Quarter: 2025Q1

REPORT INFORMATION
  Report Type: Spontaneous
  Country: US (occurrence: US)
  Receive Date: 20250130
  Receipt Date: 20250130
  Transmission Date: 20250409
  Serious: Yes (Other)
  Sender: SANOFI AVENTIS
  Company Number: US-SA-2025SA026881

PATIENT
  Age: 54 Year
  Sex: Female

DRUGS (1)
  1. THYMOGLOBULIN [Suspect]
     Active Substance: LAPINE T-LYMPHOCYTE IMMUNE GLOBULIN
     Indication: Renal transplant
     Dosage: 75 MG, Q6H
     Route: 042

REACTIONS (7)
  - Delayed graft function [Unknown]
  - Acute hepatic failure [Unknown]
  - Hypoxia [Unknown]
  - Mental status changes [Unknown]
  - Somnolence [Unknown]
  - Hypoglycaemia [Unknown]
  - Haematoma [Unknown]
